FAERS Safety Report 19423904 (Version 1)
Quarter: 2021Q2

REPORT INFORMATION
  Report Type: Spontaneous
  Country: CA (occurrence: CA)
  Receive Date: 20210616
  Receipt Date: 20210616
  Transmission Date: 20210717
  Serious: Yes (Other)
  Sender: FDA-Public Use
  Company Number: CA-AUROBINDO-AUR-APL-2021-024809

PATIENT
  Age: 65 Year
  Sex: Female

DRUGS (2)
  1. ROSUVASTATIN TABLET [Suspect]
     Active Substance: ROSUVASTATIN
     Indication: BLOOD CHOLESTEROL
     Dosage: 5 MILLIGRAM, ONCE A DAY
     Route: 048
  2. ROSUVASTATIN TABLET [Suspect]
     Active Substance: ROSUVASTATIN
     Dosage: 5 MILLIGRAM EVERY 2 DAYS
     Route: 048

REACTIONS (4)
  - Rhinorrhoea [Recovered/Resolved]
  - SARS-CoV-2 test negative [Recovered/Resolved]
  - Lacrimation increased [Recovered/Resolved]
  - Oropharyngeal discomfort [Recovered/Resolved]
